FAERS Safety Report 4883457-1 (Version None)
Quarter: 2006Q1

REPORT INFORMATION
  Report Type: 
  Country: None (occurrence: None)
  Receive Date: 20060118
  Receipt Date: 20051005
  Transmission Date: 20060701
  Serious: Yes (Hospitalization, Other)
  Sender: FDA-Public Use
  Company Number: US-MERCK-0510USA04353

PATIENT
  Age: 44 Year
  Sex: Female

DRUGS (1)
  1. VIOXX [Suspect]
     Route: 048

REACTIONS (10)
  - ARTHRALGIA [None]
  - ASTHMA [None]
  - CARDIOVASCULAR DISORDER [None]
  - CELLULITIS [None]
  - EXCORIATION [None]
  - LACERATION [None]
  - OEDEMA PERIPHERAL [None]
  - PAIN [None]
  - PULMONARY EMBOLISM [None]
  - ROAD TRAFFIC ACCIDENT [None]
